FAERS Safety Report 5068382-8 (Version None)
Quarter: 2006Q3

REPORT INFORMATION
  Report Type: 
  Country: None (occurrence: None)
  Receive Date: 20060802
  Receipt Date: 20050830
  Transmission Date: 20061208
  Serious: Yes (Other)
  Sender: FDA-Public Use
  Company Number: US-BRISTOL-MYERS SQUIBB COMPANY-13094743

PATIENT
  Age: 62 Year
  Sex: Male
  Weight: 91 kg

DRUGS (5)
  1. COUMADIN [Suspect]
     Indication: PROPHYLAXIS
     Dosage: 4 MG 5 DAYS/WEEK AND 6 MG 2 DAYS/WEEK, THEN CHANGED TO 4 MG DAILY
     Dates: start: 20040817
  2. Z-BEC [Concomitant]
     Dates: end: 20050701
  3. HYTRIN [Concomitant]
  4. LORAZEPAM [Concomitant]
  5. ACETAMINOPHEN [Concomitant]

REACTIONS (2)
  - EPISTAXIS [None]
  - HAEMORRHAGE SUBCUTANEOUS [None]
